FAERS Safety Report 9583971 (Version 1)
Quarter: 2013Q4

REPORT INFORMATION
  Report Type: Spontaneous
  Country: US (occurrence: US)
  Receive Date: 20131002
  Receipt Date: 20131002
  Transmission Date: 20140711
  Serious: No
  Sender: FDA-Public Use
  Company Number: US-AMGEN-USASP2013050179

PATIENT
  Age: 22 Year
  Sex: Female
  Weight: 55.33 kg

DRUGS (8)
  1. ENBREL [Suspect]
     Indication: RHEUMATOID ARTHRITIS
     Dosage: UNK
     Route: 065
     Dates: start: 201207, end: 201301
  2. BIOTIN [Concomitant]
     Dosage: UNK
  3. CYCLOBENZAPRINE [Concomitant]
     Dosage: UNK
  4. FOLIC ACID [Concomitant]
     Dosage: UNK
  5. METHOTREXATE [Concomitant]
     Dosage: UNK
  6. PREVACID [Concomitant]
     Dosage: UNK
  7. SPIRONOLACTONE [Concomitant]
     Dosage: UNK
  8. SIMPONI [Concomitant]
     Dosage: UNK

REACTIONS (4)
  - Injection site reaction [Recovered/Resolved]
  - Injection site irritation [Recovered/Resolved]
  - Injection site swelling [Recovered/Resolved]
  - Injection site pruritus [Recovered/Resolved]
